FAERS Safety Report 7992348-9 (Version None)
Quarter: 2011Q4

REPORT INFORMATION
  Report Type: 
  Country: None (occurrence: None)
  Receive Date: 20111219
  Receipt Date: 20110114
  Transmission Date: 20120403
  Serious: No
  Sender: FDA-Public Use
  Company Number: US-ASTRAZENECA-2010SE50958

PATIENT
  Sex: Male
  Weight: 108 kg

DRUGS (8)
  1. CRESTOR [Suspect]
     Indication: DYSLIPIDAEMIA
     Route: 048
     Dates: start: 20090901
  2. RAMIPRIL [Concomitant]
     Indication: HYPERTENSION
     Dosage: DAILY
  3. CRESTOR [Suspect]
     Indication: PROPHYLAXIS
     Route: 048
     Dates: start: 20090901
  4. ACTOS [Concomitant]
     Indication: DIABETES MELLITUS
     Dosage: DAILY
  5. METFORMIN HCL [Concomitant]
     Indication: DIABETES MELLITUS
     Dosage: DAILY
  6. EFFIENTS [Concomitant]
     Indication: ANTICOAGULANT THERAPY
     Dosage: DAILY
  7. HUMALOLG [Concomitant]
     Indication: DIABETES MELLITUS
     Dosage: DAILY
  8. CARVEDOL [Concomitant]
     Indication: HYPERTENSION
     Dosage: DAILY

REACTIONS (2)
  - ARTHRITIS [None]
  - DIABETES MELLITUS [None]
